FAERS Safety Report 10598029 (Version 1)
Quarter: 2014Q4

REPORT INFORMATION
  Report Type: Spontaneous
  Country: US (occurrence: None)
  Receive Date: 20141120
  Receipt Date: 20141120
  Transmission Date: 20150529
  Serious: No
  Sender: FDA-Public Use
  Company Number: None

PATIENT
  Age: 38 Year
  Sex: Male
  Weight: 127.01 kg

DRUGS (1)
  1. CHANTIX [Suspect]
     Active Substance: VARENICLINE TARTRATE
     Indication: SMOKING CESSATION THERAPY
     Dosage: 1 MG/ EACH @ 2 DAY 30 DAY, TWICE DAY, TAKEN BY MOUTH
     Route: 048
     Dates: start: 20141107, end: 20141119

REACTIONS (2)
  - Pollakiuria [None]
  - Bladder pain [None]

NARRATIVE: CASE EVENT DATE: 20141116
